FAERS Safety Report 12702982 (Version 2)
Quarter: 2016Q3

REPORT INFORMATION
  Report Type: Spontaneous
  Country: GB (occurrence: GB)
  Receive Date: 20160831
  Receipt Date: 20160930
  Transmission Date: 20161109
  Serious: Yes (Other)
  Sender: FDA-Public Use
  Company Number: GB-ABBVIE-16P-167-1714998-00

PATIENT
  Age: 40 Year
  Sex: Male

DRUGS (5)
  1. SERTRALINE [Concomitant]
     Active Substance: SERTRALINE HYDROCHLORIDE
     Indication: PRODUCT USED FOR UNKNOWN INDICATION
     Route: 065
     Dates: start: 1998
  2. EPILIM [Suspect]
     Active Substance: VALPROATE SODIUM
     Indication: BIPOLAR DISORDER
     Route: 065
     Dates: start: 200004
  3. EPILIM [Suspect]
     Active Substance: VALPROATE SODIUM
     Route: 065
  4. AMISULPRIDE [Concomitant]
     Active Substance: AMISULPRIDE
     Indication: PRODUCT USED FOR UNKNOWN INDICATION
     Route: 065
     Dates: start: 1996
  5. LORATADINE. [Concomitant]
     Active Substance: LORATADINE
     Indication: PRODUCT USED FOR UNKNOWN INDICATION
     Route: 065
     Dates: start: 1996

REACTIONS (8)
  - Intraocular pressure increased [Unknown]
  - Musculoskeletal stiffness [Unknown]
  - Abdominal pain upper [Unknown]
  - Headache [Unknown]
  - Hyperhidrosis [Unknown]
  - Open angle glaucoma [Unknown]
  - Weight increased [Unknown]
  - Tachycardia [Unknown]
